FAERS Safety Report 25453445 (Version 1)
Quarter: 2025Q2

REPORT INFORMATION
  Report Type: 
  Country: AU (occurrence: AU)
  Receive Date: 20250619
  Receipt Date: 20250619
  Transmission Date: 20250717
  Serious: Yes (Other)
  Sender: CELLTRION
  Company Number: AU-CELLTRION INC.-2025AU018661

PATIENT

DRUGS (8)
  1. ADALIMUMAB [Suspect]
     Active Substance: ADALIMUMAB
     Indication: Product used for unknown indication
  2. CYCLOSPORINE [Concomitant]
     Active Substance: CYCLOSPORINE
  3. CODEINE [Concomitant]
     Active Substance: CODEINE
  4. DAPSONE [Concomitant]
     Active Substance: DAPSONE
  5. MYCOPHENOLATE MOFETIL [Concomitant]
     Active Substance: MYCOPHENOLATE MOFETIL
  6. ACETAMINOPHEN [Concomitant]
     Active Substance: ACETAMINOPHEN
  7. PENTOXIFYLLINE [Concomitant]
     Active Substance: PENTOXIFYLLINE
  8. PREDNISOLONE [Concomitant]
     Active Substance: PREDNISOLONE

REACTIONS (2)
  - Pyoderma gangrenosum [Unknown]
  - Off label use [Unknown]
